FAERS Safety Report 12203170 (Version 7)
Quarter: 2016Q4

REPORT INFORMATION
  Report Type: Report from Study
  Country: US (occurrence: US)
  Receive Date: 20160323
  Receipt Date: 20161003
  Transmission Date: 20170207
  Serious: Yes (Hospitalization, Other)
  Sender: FDA-Public Use
  Company Number: US-AMGEN-USASL2016035071

PATIENT
  Age: 45 Year
  Sex: Male

DRUGS (2)
  1. BLINCYTO [Suspect]
     Active Substance: BLINATUMOMAB
     Indication: ACUTE LYMPHOCYTIC LEUKAEMIA
     Dosage: 28 MUG, QD
     Route: 065
     Dates: start: 20160311
  2. BLINCYTO [Suspect]
     Active Substance: BLINATUMOMAB
     Indication: ACUTE LYMPHOCYTIC LEUKAEMIA RECURRENT

REACTIONS (8)
  - Hospitalisation [Unknown]
  - Cognitive disorder [Unknown]
  - Endotracheal intubation [Unknown]
  - Spinal disorder [Not Recovered/Not Resolved]
  - Tremor [Unknown]
  - Septic shock [Unknown]
  - Pain [Unknown]
  - Pollakiuria [Unknown]
